FAERS Safety Report 16855472 (Version 3)
Quarter: 2023Q2

REPORT INFORMATION
  Report Type: Spontaneous
  Country: US (occurrence: US)
  Receive Date: 20190926
  Receipt Date: 20230517
  Transmission Date: 20230722
  Serious: Yes (Other)
  Sender: FDA-Public Use
  Company Number: US-GILEAD-2019-0429494

PATIENT
  Age: 44 Year
  Sex: Female
  Weight: 53.061 kg

DRUGS (32)
  1. ATRIPLA [Suspect]
     Active Substance: EFAVIRENZ\EMTRICITABINE\TENOFOVIR DISOPROXIL FUMARATE
     Indication: HIV infection
     Dosage: UNK
     Route: 048
     Dates: start: 2010, end: 20140624
  2. LASIX [Concomitant]
     Active Substance: FUROSEMIDE
     Dosage: UNK
  3. INTELENCE [Concomitant]
     Active Substance: ETRAVIRINE
     Indication: HIV infection
     Dosage: UNK
     Dates: start: 20140805
  4. PREZISTA [Concomitant]
     Active Substance: DARUNAVIR ETHANOLATE
     Dosage: UNK
     Dates: start: 20140805
  5. NORVIR [Concomitant]
     Active Substance: RITONAVIR
     Dosage: UNK
     Dates: start: 20140805
  6. ISENTRESS [Concomitant]
     Active Substance: RALTEGRAVIR POTASSIUM
     Dosage: UNK
     Dates: start: 20140805
  7. FERROUS SULFATE [Concomitant]
     Active Substance: FERROUS SULFATE
  8. CALCITRIOL [Concomitant]
     Active Substance: CALCITRIOL
  9. LISINOPRIL [Concomitant]
     Active Substance: LISINOPRIL
  10. AMLODIPINE [Concomitant]
     Active Substance: AMLODIPINE BESYLATE
  11. ROSUVASTATIN [Concomitant]
     Active Substance: ROSUVASTATIN
  12. AURYXIA [Concomitant]
     Active Substance: TETRAFERRIC TRICITRATE DECAHYDRATE
  13. ASPIRIN [Concomitant]
     Active Substance: ASPIRIN
  14. ATOVAQUONE [Concomitant]
     Active Substance: ATOVAQUONE
  15. AZITHROMYCIN [Concomitant]
     Active Substance: AZITHROMYCIN
  16. BANOPHEN [Concomitant]
     Active Substance: DIPHENHYDRAMINE HYDROCHLORIDE
  17. CARVEDILOL [Concomitant]
     Active Substance: CARVEDILOL
  18. BRISDELLE [Concomitant]
     Active Substance: PAROXETINE MESYLATE
  19. CLARITIN [Concomitant]
     Active Substance: LORATADINE
  20. CLONIDINE [Concomitant]
     Active Substance: CLONIDINE
  21. DAPTOMYCIN [Concomitant]
     Active Substance: DAPTOMYCIN
  22. DOCUSATE [Concomitant]
     Active Substance: DOCUSATE
  23. ERTAPENEM SODIUM [Concomitant]
     Active Substance: ERTAPENEM SODIUM
  24. FAMOTIDINE [Concomitant]
     Active Substance: FAMOTIDINE
  25. GABAPENTIN [Concomitant]
     Active Substance: GABAPENTIN
  26. LEVOFLOXACIN [Concomitant]
     Active Substance: LEVOFLOXACIN
  27. LIPITOR [Concomitant]
     Active Substance: ATORVASTATIN CALCIUM
  28. LOSARTAN [Concomitant]
     Active Substance: LOSARTAN
  29. MICAFUNGIN SODIUM [Concomitant]
     Active Substance: MICAFUNGIN SODIUM
  30. PANTOPRAZOLE [Concomitant]
     Active Substance: PANTOPRAZOLE
  31. TYLENOL [Concomitant]
     Active Substance: ACETAMINOPHEN
  32. FUROSEMIDE [Concomitant]
     Active Substance: FUROSEMIDE

REACTIONS (9)
  - End stage renal disease [Not Recovered/Not Resolved]
  - Chronic kidney disease [Unknown]
  - Renal failure [Not Recovered/Not Resolved]
  - Quality of life decreased [Not Recovered/Not Resolved]
  - Decreased activity [Not Recovered/Not Resolved]
  - Emotional distress [Not Recovered/Not Resolved]
  - Anhedonia [Not Recovered/Not Resolved]
  - Anxiety [Not Recovered/Not Resolved]
  - Pain [Not Recovered/Not Resolved]

NARRATIVE: CASE EVENT DATE: 20130925
